FAERS Safety Report 10116289 (Version 2)
Quarter: 2015Q1

REPORT INFORMATION
  Report Type: Other
  Country: None (occurrence: US)
  Receive Date: 20140426
  Receipt Date: 20150122
  Transmission Date: 20150720
  Serious: Yes (Death, Hospitalization, Other)
  Sender: FDA-Public Use
  Company Number: US-GSKPPD-2014GSK016972

PATIENT
  Sex: Male

DRUGS (6)
  1. CARVEDILOL. [Concomitant]
     Active Substance: CARVEDILOL
     Route: 048
     Dates: start: 20080805
  2. ASPIRIN. [Concomitant]
     Active Substance: ASPIRIN
     Route: 048
  3. CLOPIDOGREL [Concomitant]
     Active Substance: CLOPIDOGREL BISULFATE
     Route: 048
  4. LISINOPRIL. [Concomitant]
     Active Substance: LISINOPRIL
     Route: 048
  5. AVANDIA [Suspect]
     Active Substance: ROSIGLITAZONE MALEATE
     Indication: DIABETES MELLITUS
     Dosage: DATE OF AVANDIA USE COULD NOT BE CONFIRMED IN RECORDS REVIEWED.
     Route: 048
     Dates: end: 20080805
  6. NITROGLYCERIN. [Concomitant]
     Active Substance: NITROGLYCERIN
     Route: 060
     Dates: start: 20080805

REACTIONS (3)
  - Myocardial infarction [Fatal]
  - Coronary arterial stent insertion [Recovered/Resolved]
  - Arteriosclerosis coronary artery [Unknown]

NARRATIVE: CASE EVENT DATE: 20080804
